FAERS Safety Report 8972067 (Version 2)
Quarter: 2013Q1

REPORT INFORMATION
  Report Type: Spontaneous
  Country: DE (occurrence: DE)
  Receive Date: 20121219
  Receipt Date: 20130129
  Transmission Date: 20140127
  Serious: Yes (Life-Threatening, Hospitalization)
  Sender: FDA-Public Use
  Company Number: DE-009507513-1212DEU006211

PATIENT
  Age: 68 Year
  Sex: Female
  Weight: 88 kg

DRUGS (7)
  1. VICTRELIS [Suspect]
     Indication: HEPATITIS C
     Dosage: 200 MG CAPSULES,FOUR CAPSULES, TID
     Route: 048
     Dates: start: 20121214, end: 20121216
  2. PEGASYS [Suspect]
     Indication: HEPATITIS C
     Dosage: UNK
     Route: 058
     Dates: start: 2004
  3. COPEGUS [Suspect]
     Indication: HEPATITIS C
     Dosage: 400 MG, BID
     Route: 048
     Dates: start: 2004
  4. LEVOTHYROXINE SODIUM [Concomitant]
     Indication: HYPOTHYROIDISM
     Dosage: 75 MICROGRAM, QD
     Route: 048
     Dates: start: 1992
  5. APROVEL [Concomitant]
     Indication: HYPERTENSION
     Dosage: 150 MG, BID
     Route: 048
     Dates: start: 1992
  6. CARMEN [Concomitant]
     Indication: HYPERTENSION
     Dosage: 10 MG, QD
     Route: 048
     Dates: start: 1992
  7. PANTOZOL [Concomitant]
     Dosage: 20 MG, QD
     Route: 048
     Dates: start: 201212

REACTIONS (5)
  - Angioedema [Recovered/Resolved]
  - Fungal infection [Unknown]
  - Hypokalaemia [Unknown]
  - Swollen tongue [Unknown]
  - Hypersensitivity [Unknown]
